FAERS Safety Report 8456601-7 (Version None)
Quarter: 2012Q2

REPORT INFORMATION
  Report Type: 
  Country: None (occurrence: None)
  Receive Date: 20120621
  Receipt Date: 20120612
  Transmission Date: 20120825
  Serious: Yes (Hospitalization, Other)
  Sender: FDA-Public Use
  Company Number: US-ELI_LILLY_AND_COMPANY-US201101004044

PATIENT
  Sex: Female
  Weight: 50.34 kg

DRUGS (16)
  1. FORTEO [Suspect]
     Dosage: 20 UG, QD
     Route: 065
  2. COPPER [Concomitant]
  3. PANTOPRAZOLE [Concomitant]
  4. FORTEO [Suspect]
     Indication: OSTEOPOROSIS
     Dosage: 20 UG, DAILY (1/D)
     Route: 065
     Dates: start: 20101224
  5. FORTEO [Suspect]
     Dosage: 20 UG, DAILY (1/D)
     Route: 065
  6. FORTEO [Suspect]
     Dosage: 20 UG, QD
     Route: 065
  7. LISINOPRIL [Concomitant]
  8. GABAPENTIN [Concomitant]
     Indication: NEURALGIA
  9. EXTRA STRENGTH TYLENOL [Concomitant]
     Dosage: 6 DF,  DAILY (MAXIMUM)
  10. CALCIUM W/VITAMIN D NOS [Concomitant]
  11. METHOTREXATE [Concomitant]
     Dosage: UNK, WEEKLY (1/W)
  12. IBUPROFEN [Concomitant]
     Indication: ARTHRITIS
  13. FORTEO [Suspect]
     Dosage: 20 UG, DAILY (1/D)
     Route: 065
  14. PREDNISONE TAB [Concomitant]
     Dosage: 2.5 MG, UNK
  15. VITAMIN D [Concomitant]
  16. FOLIC ACID [Concomitant]

REACTIONS (26)
  - RASH PRURITIC [None]
  - RASH [None]
  - NEEDLE ISSUE [None]
  - LOWER LIMB FRACTURE [None]
  - DIZZINESS POSTURAL [None]
  - SPINAL PAIN [None]
  - PROCEDURAL PAIN [None]
  - SENSORY DISTURBANCE [None]
  - DEVICE MALFUNCTION [None]
  - FIBULA FRACTURE [None]
  - MULTIPLE FRACTURES [None]
  - UPPER LIMB FRACTURE [None]
  - GAIT DISTURBANCE [None]
  - PANIC REACTION [None]
  - TIBIA FRACTURE [None]
  - CERVICAL SPINAL STENOSIS [None]
  - ILL-DEFINED DISORDER [None]
  - DISCOMFORT [None]
  - DYSSTASIA [None]
  - NERVE INJURY [None]
  - PAIN IN EXTREMITY [None]
  - FALL [None]
  - WEIGHT BEARING DIFFICULTY [None]
  - DYSPNOEA [None]
  - DRUG DOSE OMISSION [None]
  - PHOTOPSIA [None]
